FAERS Safety Report 8778061 (Version 1)
Quarter: 2012Q4

REPORT INFORMATION
  Report Type: 
  Country: US (occurrence: US)
  Receive Date: 20120912
  Receipt Date: 20120912
  Transmission Date: 20130627
  Serious: No
  Sender: FDA-Public Use
  Company Number: US-TEVA-358784USA

PATIENT
  Sex: Female
  Weight: 49.94 kg

DRUGS (3)
  1. NUVIGIL [Suspect]
     Indication: NARCOLEPSY
     Dosage: 250 Milligram Daily; QD
     Dates: start: 201207, end: 20120808
  2. XYREM [Concomitant]
     Indication: NARCOLEPSY
     Dosage: QHS
     Route: 048
  3. VARIOUS ALLERGY MEDICATIONS [Concomitant]
     Indication: HYPERSENSITIVITY
     Dosage: PRN
     Route: 048

REACTIONS (3)
  - Hypersomnia [Recovered/Resolved]
  - Feeling abnormal [Recovered/Resolved]
  - Mood altered [Not Recovered/Not Resolved]
